FAERS Safety Report 19445650 (Version 1)
Quarter: 2021Q2

REPORT INFORMATION
  Report Type: Spontaneous
  Country: JP (occurrence: JP)
  Receive Date: 20210622
  Receipt Date: 20210622
  Transmission Date: 20210717
  Serious: Yes (Other)
  Sender: FDA-Public Use
  Company Number: JP-CHEPLA-C20213008

PATIENT
  Age: 72 Year
  Sex: Male
  Weight: 51 kg

DRUGS (5)
  1. FORMOTEROL FUMARATE [Concomitant]
     Active Substance: FORMOTEROL FUMARATE
     Indication: ASTHMA
  2. VITAMIN K [Concomitant]
     Active Substance: PHYTONADIONE
  3. MEROPENEM. [Concomitant]
     Active Substance: MEROPENEM
     Dosage: 2 G, DAILY
  4. CEFEPIME [Suspect]
     Active Substance: CEFEPIME HYDROCHLORIDE
  5. GANCICLOVIR. [Suspect]
     Active Substance: GANCICLOVIR
     Indication: CYTOMEGALOVIRUS ENTEROCOLITIS
     Dosage: 5 MG/KG, BID, SINCE DAY 27 FROM HOSPITALISATION

REACTIONS (9)
  - Staphylococcal bacteraemia [Unknown]
  - Gastrointestinal perforation [Unknown]
  - Shock [Unknown]
  - Abdominal pain [Unknown]
  - Normocytic anaemia [Unknown]
  - Purpura [Unknown]
  - Splenomegaly [Unknown]
  - Bacteraemia [Unknown]
  - Coagulopathy [Unknown]
